FAERS Safety Report 9510749 (Version 2)
Quarter: 2014Q1

REPORT INFORMATION
  Report Type: Spontaneous
  Country: BE (occurrence: BE)
  Receive Date: 20130910
  Receipt Date: 20140102
  Transmission Date: 20141002
  Serious: Yes (Other)
  Sender: FDA-Public Use
  Company Number: BE-AMGEN-BELSP2013062649

PATIENT
  Age: 68 Year
  Sex: Female

DRUGS (4)
  1. ENBREL [Suspect]
     Indication: PSORIATIC ARTHROPATHY
     Dosage: 50 MG, WEEKLY
     Route: 058
     Dates: start: 200607, end: 20130530
  2. PRIMPERAN [Concomitant]
     Dosage: UNK, AS NECESSARY
     Route: 048
  3. CONTRAMAL [Concomitant]
     Dosage: 8 GTT, AS NEEDED
     Route: 048
  4. CELEBREX [Concomitant]
     Dosage: UNK

REACTIONS (1)
  - Breast cancer [Recovering/Resolving]
